FAERS Safety Report 19701067 (Version 2)
Quarter: 2021Q3

REPORT INFORMATION
  Report Type: Report from Study
  Country: CO (occurrence: CO)
  Receive Date: 20210813
  Receipt Date: 20210824
  Transmission Date: 20211014
  Serious: No
  Sender: FDA-Public Use
  Company Number: CO-TAKEDA-CO201909619

PATIENT
  Age: 30 Year
  Sex: Female
  Weight: 66 kg

DRUGS (16)
  1. ICATIBANT [Suspect]
     Active Substance: ICATIBANT ACETATE
     Dosage: 30 MILLIGRAM, AS NEEDED
     Route: 058
     Dates: start: 20190826, end: 20190826
  2. ICATIBANT [Suspect]
     Active Substance: ICATIBANT ACETATE
     Dosage: 1 DOSAGE FORM, PRN
     Route: 058
  3. ICATIBANT [Suspect]
     Active Substance: ICATIBANT ACETATE
     Dosage: 30 MILLIGRAM, AS NEEDED
     Route: 058
     Dates: start: 20190329, end: 20190329
  4. ICATIBANT [Suspect]
     Active Substance: ICATIBANT ACETATE
     Dosage: 30 MILLIGRAM, AS NEEDED
     Route: 058
     Dates: start: 20190808, end: 20190808
  5. ICATIBANT [Suspect]
     Active Substance: ICATIBANT ACETATE
     Dosage: 30 MILLIGRAM, AS NEEDED
     Route: 058
     Dates: start: 20190826, end: 20190826
  6. ICATIBANT [Suspect]
     Active Substance: ICATIBANT ACETATE
     Dosage: 3 AMPOULE, TID
     Route: 058
     Dates: start: 20161201
  7. ICATIBANT [Suspect]
     Active Substance: ICATIBANT ACETATE
     Indication: HEREDITARY ANGIOEDEMA
     Dosage: 30 MILLIGRAM, AS NEEDED
     Route: 058
     Dates: start: 20190319, end: 20190319
  8. ICATIBANT [Suspect]
     Active Substance: ICATIBANT ACETATE
     Dosage: 30 MILLIGRAM, AS NEEDED
     Route: 058
     Dates: start: 20190329, end: 20190329
  9. ICATIBANT [Suspect]
     Active Substance: ICATIBANT ACETATE
     Dosage: 30 MILLIGRAM, AS NEEDED
     Route: 058
     Dates: start: 20190620, end: 20190620
  10. ICATIBANT [Suspect]
     Active Substance: ICATIBANT ACETATE
     Dosage: 30 MILLIGRAM, AS NEEDED
     Route: 058
     Dates: start: 20190822, end: 20190822
  11. ICATIBANT [Suspect]
     Active Substance: ICATIBANT ACETATE
     Dosage: 3 AMPOULE, TID
     Route: 058
     Dates: start: 20161201
  12. ICATIBANT [Suspect]
     Active Substance: ICATIBANT ACETATE
     Dosage: 30 MILLIGRAM, AS NEEDED
     Route: 058
     Dates: start: 20190620, end: 20190620
  13. ICATIBANT [Suspect]
     Active Substance: ICATIBANT ACETATE
     Dosage: 30 MILLIGRAM, AS NEEDED
     Route: 058
     Dates: start: 20190808, end: 20190808
  14. ICATIBANT [Suspect]
     Active Substance: ICATIBANT ACETATE
     Dosage: 30 MILLIGRAM, AS NEEDED
     Route: 058
     Dates: start: 20190822, end: 20190822
  15. ICATIBANT [Suspect]
     Active Substance: ICATIBANT ACETATE
     Indication: HEREDITARY ANGIOEDEMA
     Dosage: 30 MILLIGRAM, AS NEEDED
     Route: 058
     Dates: start: 20190319, end: 20190319
  16. ICATIBANT [Suspect]
     Active Substance: ICATIBANT ACETATE
     Dosage: 1 DOSAGE FORM, PRN
     Route: 058

REACTIONS (2)
  - Product prescribing error [Unknown]
  - Weight increased [Unknown]

NARRATIVE: CASE EVENT DATE: 20210806
